FAERS Safety Report 19204653 (Version 10)
Quarter: 2022Q2

REPORT INFORMATION
  Report Type: Report from Study
  Country: BR (occurrence: BR)
  Receive Date: 20210503
  Receipt Date: 20220516
  Transmission Date: 20220721
  Serious: Yes (Life-Threatening, Hospitalization, Other)
  Sender: FDA-Public Use
  Company Number: NVSC2020BR349571

PATIENT
  Age: 68 Year
  Sex: Female
  Weight: 73.1 kg

DRUGS (29)
  1. KISQALI [Suspect]
     Active Substance: RIBOCICLIB
     Indication: Neoplasm malignant
     Dosage: 600 MG
     Route: 048
     Dates: start: 20200902
  2. KISQALI [Suspect]
     Active Substance: RIBOCICLIB
     Indication: Breast cancer female
     Dosage: 600 MG, QD
     Route: 048
     Dates: start: 20200915
  3. KISQALI [Suspect]
     Active Substance: RIBOCICLIB
     Indication: Breast cancer metastatic
     Dosage: 3 DF QD (3 TABLETS)
     Route: 065
     Dates: start: 20200925
  4. KISQALI [Suspect]
     Active Substance: RIBOCICLIB
     Dosage: 3 DF, QD (3 TABLETS EVERY DAY FOR 21 DAYS WITH 7 DAYS OF BREAK)
     Route: 065
     Dates: start: 20200925
  5. KISQALI [Suspect]
     Active Substance: RIBOCICLIB
     Dosage: 3 DF, QD (3 TABLETS PER DAY) (DAILY AROUND 20 HRS)
     Route: 065
     Dates: start: 20200925
  6. KISQALI [Suspect]
     Active Substance: RIBOCICLIB
     Dosage: UNK
     Route: 065
     Dates: start: 20200925
  7. KISQALI [Suspect]
     Active Substance: RIBOCICLIB
     Dosage: UNK
     Route: 065
     Dates: start: 20200925
  8. KISQALI [Suspect]
     Active Substance: RIBOCICLIB
     Dosage: 600 MG
     Route: 048
     Dates: start: 202010
  9. ZOMETA [Suspect]
     Active Substance: ZOLEDRONIC ACID
     Indication: Metastases to bone
     Dosage: UNK
     Route: 065
     Dates: start: 2016
  10. ZOMETA [Suspect]
     Active Substance: ZOLEDRONIC ACID
     Indication: Hormone therapy
     Dosage: UNK, Q3MO
     Route: 065
     Dates: start: 20160726
  11. ZOMETA [Suspect]
     Active Substance: ZOLEDRONIC ACID
     Dosage: 4 MG, Q3MO (INJECTION) (EVERY 3 MONTHS)
     Route: 042
     Dates: start: 201712
  12. ZOMETA [Suspect]
     Active Substance: ZOLEDRONIC ACID
     Dosage: UNK, Q3MO
     Route: 065
  13. LOSARTAN [Suspect]
     Active Substance: LOSARTAN
     Indication: Hypertension
     Dosage: UNK, BID
     Route: 048
     Dates: start: 202006
  14. LOSARTAN [Suspect]
     Active Substance: LOSARTAN
     Dosage: 100 MG, QD
     Route: 048
  15. AMLODIPINE [Suspect]
     Active Substance: AMLODIPINE BESYLATE
     Indication: Hypertension
     Dosage: 5 MG, QD
     Route: 048
     Dates: start: 202006
  16. FASLODEX [Concomitant]
     Active Substance: FULVESTRANT
     Indication: Breast cancer
     Dosage: 3 DF (3 INJECTIONS EVERY 14 DAYS)
     Route: 065
     Dates: start: 20180103, end: 20190118
  17. FASLODEX [Concomitant]
     Active Substance: FULVESTRANT
     Dosage: UNK
     Route: 030
     Dates: start: 20200901
  18. FASLODEX [Concomitant]
     Active Substance: FULVESTRANT
     Dosage: 500 MG (EVERY 28 DAYS)
     Route: 030
     Dates: start: 20200902
  19. FASLODEX [Concomitant]
     Active Substance: FULVESTRANT
     Dosage: UNK
     Route: 065
     Dates: start: 20201001
  20. XELODA [Concomitant]
     Active Substance: CAPECITABINE
     Indication: Product used for unknown indication
     Dosage: 7 DF
     Route: 065
     Dates: start: 201901
  21. XELODA [Concomitant]
     Active Substance: CAPECITABINE
     Dosage: 5 DF
     Route: 065
  22. XELODA [Concomitant]
     Active Substance: CAPECITABINE
     Dosage: 3 DF
     Route: 065
  23. XELODA [Concomitant]
     Active Substance: CAPECITABINE
     Dosage: UNK
     Route: 065
     Dates: start: 201901
  24. XELODA [Concomitant]
     Active Substance: CAPECITABINE
     Dosage: UNK
     Route: 065
  25. CICAPLAST [Concomitant]
     Indication: Product used for unknown indication
     Dosage: UNK
     Route: 065
  26. FLANAX CAPS [Concomitant]
     Active Substance: NAPROXEN
     Indication: Product used for unknown indication
     Dosage: UNK
     Route: 065
  27. ARIMIDEX [Concomitant]
     Active Substance: ANASTROZOLE
     Indication: Product used for unknown indication
     Dosage: UNK
     Route: 065
     Dates: start: 20160101
  28. AMIL CO [Concomitant]
     Indication: Product used for unknown indication
     Dosage: UNK
     Route: 065
  29. CELEBRA [Concomitant]
     Active Substance: CELECOXIB
     Indication: Bone pain
     Dosage: UNK
     Route: 065
     Dates: start: 20210523

REACTIONS (83)
  - Volvulus [Unknown]
  - Decreased appetite [Unknown]
  - Vomiting [Unknown]
  - Anaemia [Not Recovered/Not Resolved]
  - Nausea [Unknown]
  - Haemorrhage [Unknown]
  - Hypoaesthesia [Recovered/Resolved]
  - Immunodeficiency [Recovering/Resolving]
  - Femur fracture [Unknown]
  - Carbohydrate antigen 15-3 increased [Unknown]
  - Metastasis [Not Recovered/Not Resolved]
  - Neutropenia [Not Recovered/Not Resolved]
  - Liver injury [Unknown]
  - Metastases to liver [Unknown]
  - Metastases to spine [Unknown]
  - Malignant neoplasm of renal pelvis [Unknown]
  - Decreased immune responsiveness [Not Recovered/Not Resolved]
  - Decreased immune responsiveness [Recovered/Resolved]
  - Decreased immune responsiveness [Recovered/Resolved]
  - Decreased immune responsiveness [Recovered/Resolved]
  - Neutrophil count abnormal [Unknown]
  - Insomnia [Recovering/Resolving]
  - Red blood cell count decreased [Not Recovered/Not Resolved]
  - Eyelid disorder [Recovered/Resolved]
  - Weight decreased [Unknown]
  - Eye swelling [Not Recovered/Not Resolved]
  - Haematoma [Recovering/Resolving]
  - Vitamin D deficiency [Recovering/Resolving]
  - Dehydration [Recovering/Resolving]
  - Onychomadesis [Unknown]
  - Feeling abnormal [Recovering/Resolving]
  - Pain in extremity [Recovering/Resolving]
  - Application site exfoliation [Unknown]
  - Injection site pain [Unknown]
  - Blood disorder [Unknown]
  - Haematocrit decreased [Unknown]
  - Somnolence [Recovered/Resolved]
  - Drug intolerance [Unknown]
  - Pain [Unknown]
  - Onychomycosis [Unknown]
  - Skin atrophy [Unknown]
  - Hypersensitivity [Unknown]
  - Skin exfoliation [Unknown]
  - Visual impairment [Not Recovered/Not Resolved]
  - Dark circles under eyes [Unknown]
  - Nail disorder [Not Recovered/Not Resolved]
  - Visual impairment [Recovered/Resolved]
  - Skin discolouration [Recovered/Resolved]
  - Anxiety [Unknown]
  - Bone pain [Unknown]
  - Back pain [Unknown]
  - Chest pain [Recovered/Resolved]
  - Road traffic accident [Recovering/Resolving]
  - Musculoskeletal chest pain [Recovering/Resolving]
  - Bone lesion [Unknown]
  - Skeletal injury [Unknown]
  - Cardiac disorder [Unknown]
  - Blood urea increased [Recovered/Resolved]
  - Concussion [Unknown]
  - Blood test abnormal [Recovered/Resolved]
  - Alopecia [Unknown]
  - White blood cell count decreased [Not Recovered/Not Resolved]
  - Alopecia [Recovered/Resolved]
  - Platelet count decreased [Unknown]
  - Nausea [Recovered/Resolved]
  - Dry skin [Unknown]
  - Asthenia [Unknown]
  - Dizziness [Unknown]
  - Fatigue [Not Recovered/Not Resolved]
  - Rash macular [Recovered/Resolved]
  - Pruritus [Recovering/Resolving]
  - Headache [Recovered/Resolved]
  - Drug ineffective [Recovering/Resolving]
  - Rash [Unknown]
  - Nausea [Recovered/Resolved]
  - Erythema [Recovered/Resolved]
  - Nausea [Recovered/Resolved]
  - Aspartate aminotransferase increased [Recovered/Resolved]
  - Alanine aminotransferase increased [Recovered/Resolved]
  - Blood creatinine increased [Recovered/Resolved]
  - Movement disorder [Unknown]
  - Inappropriate schedule of product administration [Unknown]
  - Product dose omission issue [Unknown]

NARRATIVE: CASE EVENT DATE: 20200901
